FAERS Safety Report 9697549 (Version 4)
Quarter: 2014Q3

REPORT INFORMATION
  Report Type: Spontaneous
  Country: TR (occurrence: TR)
  Receive Date: 20131120
  Receipt Date: 20140825
  Transmission Date: 20150326
  Serious: Yes (Hospitalization)
  Sender: FDA-Public Use
  Company Number: TR-VERTEX PHARMACEUTICALS INC-2013-011167

PATIENT
  Age: 55 Year
  Sex: Female

DRUGS (7)
  1. INCIVO [Suspect]
     Active Substance: TELAPREVIR
     Indication: CHRONIC HEPATITIS C
     Dosage: 750 MG, TID
     Route: 048
     Dates: start: 20130218, end: 20130513
  2. INCIVO [Suspect]
     Active Substance: TELAPREVIR
     Dosage: 750 MG, TID
     Route: 048
     Dates: start: 20130311, end: 20130513
  3. RIBAVIRIN. [Suspect]
     Active Substance: RIBAVIRIN
     Indication: CHRONIC HEPATITIS C
     Dosage: 400 MG, TID
     Route: 048
     Dates: start: 20130218, end: 20130611
  4. PEGINTERFERON ALFA-2B [Suspect]
     Active Substance: PEGINTERFERON ALFA-2B
     Indication: CHRONIC HEPATITIS C
     Dosage: 100 ?G, QW
     Route: 058
     Dates: start: 20130524
  5. RIBAVIRIN. [Suspect]
     Active Substance: RIBAVIRIN
     Dosage: 400 MG, TID
     Route: 048
     Dates: start: 20130611
  6. PEGINTERFERON ALFA-2A [Suspect]
     Active Substance: PEGINTERFERON ALFA-2A
     Indication: CHRONIC HEPATITIS C
     Dosage: 180 ?G, QW
     Route: 058
     Dates: start: 20130218, end: 20130606
  7. PEGINTERFERON ALFA-2B [Suspect]
     Active Substance: PEGINTERFERON ALFA-2B
     Dosage: 100 ?G, QW
     Route: 058
     Dates: start: 20130606, end: 20130806

REACTIONS (5)
  - Gastric ulcer haemorrhage [Recovered/Resolved]
  - Decreased appetite [Unknown]
  - Haematemesis [Unknown]
  - Fatigue [Unknown]
  - Rectal haemorrhage [Recovered/Resolved]

NARRATIVE: CASE EVENT DATE: 20130308
